FAERS Safety Report 9888084 (Version 1)
Quarter: 2014Q1

REPORT INFORMATION
  Report Type: Spontaneous
  Country: US (occurrence: None)
  Receive Date: 20140210
  Receipt Date: 20140210
  Transmission Date: 20141002
  Serious: Yes (Death)
  Sender: FDA-Public Use
  Company Number: None

PATIENT
  Age: 53 Year
  Sex: Female

DRUGS (1)
  1. HIZENTRA [Suspect]
     Dosage: HIZENTRA 0.2GM/ML 15 GM 5 DAYS SUBCUTANEOUS
     Route: 058
     Dates: start: 201012, end: 201402

REACTIONS (1)
  - Death [None]
